FAERS Safety Report 6666460-0 (Version None)
Quarter: 2010Q2

REPORT INFORMATION
  Report Type: 
  Country: None (occurrence: None)
  Receive Date: 20100402
  Receipt Date: 20100325
  Transmission Date: 20101027
  Serious: Yes (Hospitalization)
  Sender: FDA-Public Use
  Company Number: FR-ABBOTT-10P-056-0635443-00

PATIENT
  Sex: Male

DRUGS (3)
  1. ENANTONE LP [Suspect]
     Indication: PROSTATE CANCER
     Route: 058
     Dates: start: 20090601
  2. CASODEX [Concomitant]
     Indication: PROSTATE CANCER
     Route: 048
     Dates: start: 20090601, end: 20090801
  3. TAREG [Concomitant]
     Indication: DRUG USE FOR UNKNOWN INDICATION

REACTIONS (6)
  - BONE PAIN [None]
  - CHEST PAIN [None]
  - CONSTIPATION [None]
  - GINGIVITIS [None]
  - HOT FLUSH [None]
  - PRESYNCOPE [None]
